FAERS Safety Report 6154534-2 (Version None)
Quarter: 2009Q2

REPORT INFORMATION
  Report Type: 
  Country: None (occurrence: None)
  Receive Date: 20090410
  Receipt Date: 20090410
  Transmission Date: 20091009
  Serious: No
  Sender: FDA-Public Use
  Company Number: None

PATIENT
  Sex: Male
  Weight: 90.7194 kg

DRUGS (1)
  1. ALLEGRA D 24 HOUR [Suspect]
     Indication: MULTIPLE ALLERGIES
     Dosage: ONE TABLET 24 HOURS PO
     Route: 048
     Dates: start: 20070220, end: 20090409

REACTIONS (2)
  - MEDICATION RESIDUE [None]
  - PRODUCT QUALITY ISSUE [None]
